FAERS Safety Report 5390762-1 (Version None)
Quarter: 2007Q3

REPORT INFORMATION
  Report Type: 
  Country: None (occurrence: None)
  Receive Date: 20070716
  Receipt Date: 20050715
  Transmission Date: 20080115
  Serious: Yes (Death)
  Sender: FDA-Public Use
  Company Number: MPS1-10314

PATIENT
  Age: 23 Month
  Sex: Female
  Weight: 10.8863 kg

DRUGS (2)
  1. ALDURAZYME [Suspect]
     Indication: MUCOPOLYSACCHARIDOSIS I
     Dosage: 100 U/KG IV
     Route: 042
     Dates: start: 20031103, end: 20041121
  2. PREDNISONE [Concomitant]

REACTIONS (10)
  - ACUTE GRAFT VERSUS HOST DISEASE IN INTESTINE [None]
  - ACUTE GRAFT VERSUS HOST DISEASE IN SKIN [None]
  - BRONCHOPULMONARY ASPERGILLOSIS [None]
  - DYSTROPHIC CALCIFICATION [None]
  - FUNGAL INFECTION [None]
  - GRAFT VERSUS HOST DISEASE [None]
  - OBLITERATIVE BRONCHIOLITIS [None]
  - PANCREATITIS [None]
  - PNEUMONIA [None]
  - PULMONARY HAEMORRHAGE [None]
